FAERS Safety Report 19167445 (Version 1)
Quarter: 2021Q2

REPORT INFORMATION
  Report Type: Spontaneous
  Country: US (occurrence: US)
  Receive Date: 20210421
  Receipt Date: 20210421
  Transmission Date: 20210717
  Serious: No
  Sender: FDA-Public Use
  Company Number: None

PATIENT
  Age: 37 Year
  Sex: Female

DRUGS (1)
  1. TREMFYA [Suspect]
     Active Substance: GUSELKUMAB
     Indication: MYOCARDITIS
     Dosage: ?          OTHER FREQUENCY:EVERY 8 WEEKS ;?
     Route: 058
     Dates: start: 20201112

REACTIONS (5)
  - Psoriasis [None]
  - Therapeutic response decreased [None]
  - Maternal exposure during pregnancy [None]
  - Pregnancy [None]
  - Pruritus [None]

NARRATIVE: CASE EVENT DATE: 202101
